FAERS Safety Report 19043268 (Version 1)
Quarter: 2021Q1

REPORT INFORMATION
  Report Type: Spontaneous
  Country: US (occurrence: US)
  Receive Date: 20210322
  Receipt Date: 20210322
  Transmission Date: 20210420
  Serious: Yes (Disabling)
  Sender: FDA-Public Use
  Company Number: None

PATIENT
  Age: 38 Year
  Sex: Male
  Weight: 89.55 kg

DRUGS (4)
  1. LORAZEPAM. [Concomitant]
     Active Substance: LORAZEPAM
  2. ATIVAN [Suspect]
     Active Substance: LORAZEPAM
     Indication: ANXIETY
     Dosage: ?          QUANTITY:2 TABLET(S);?
     Route: 048
  3. PAROXETINE. [Concomitant]
     Active Substance: PAROXETINE
  4. BISOPROLOL [Concomitant]
     Active Substance: BISOPROLOL

REACTIONS (15)
  - Weight decreased [None]
  - Photosensitivity reaction [None]
  - Drug ineffective [None]
  - Obsessive-compulsive disorder [None]
  - Agitation [None]
  - Mental impairment [None]
  - Insomnia [None]
  - Product solubility abnormal [None]
  - Tinnitus [None]
  - Heart rate increased [None]
  - Product measured potency issue [None]
  - Withdrawal syndrome [None]
  - Blood pressure increased [None]
  - Decreased appetite [None]
  - Suspected counterfeit product [None]
